FAERS Safety Report 8022843 (Version 5)
Quarter: 2012Q4

REPORT INFORMATION
  Report Type: Report from Study
  Country: JP (occurrence: JP)
  Receive Date: 20110706
  Receipt Date: 20121009
  Transmission Date: 20130627
  Serious: Yes (Hospitalization)
  Sender: FDA-Public Use
  Company Number: JP-JNJFOC-20110612830

PATIENT
  Age: 72 Year
  Sex: Male
  Weight: 50 kg

DRUGS (15)
  1. REMICADE [Suspect]
     Indication: PSORIASIS
     Dosage: 5th infusion
     Route: 042
     Dates: start: 20101014
  2. REMICADE [Suspect]
     Indication: PSORIASIS
     Dosage: 6th infusion
     Route: 042
     Dates: start: 20110323
  3. REMICADE [Suspect]
     Indication: PSORIASIS
     Route: 042
     Dates: start: 20110520
  4. REMICADE [Suspect]
     Indication: PSORIASIS
     Route: 042
     Dates: start: 20110715
  5. REMICADE [Suspect]
     Indication: PSORIASIS
     Route: 042
     Dates: start: 20110902
  6. REMICADE [Suspect]
     Indication: PSORIASIS
     Route: 042
     Dates: start: 20111028
  7. REMICADE [Suspect]
     Indication: PSORIASIS
     Route: 042
     Dates: start: 20111221
  8. REMICADE [Suspect]
     Indication: PSORIASIS
     Dosage: Also reported as 12th dose
     Route: 042
     Dates: start: 20120216
  9. REMICADE [Suspect]
     Indication: PSORIASIS
     Route: 042
     Dates: start: 20120413
  10. REMICADE [Suspect]
     Indication: PSORIASIS
     Route: 042
     Dates: start: 20100818
  11. REMICADE [Suspect]
     Indication: PSORIASIS
     Dosage: 1st infusion
     Route: 042
     Dates: start: 20100512
  12. REMICADE [Suspect]
     Indication: PSORIASIS
     Route: 042
     Dates: start: 20120608
  13. OXAROL [Concomitant]
     Indication: PUSTULAR PSORIASIS
     Dosage: start date reported as ^Unknown. Before starting inflximab^
     Route: 061
     Dates: end: 20100622
  14. ANTEBATE [Concomitant]
     Indication: PUSTULAR PSORIASIS
     Dosage: start date reported as ^Unknown. Before starting inflximab^
     Route: 061
     Dates: end: 20100622
  15. TIGASON [Concomitant]
     Route: 048
     Dates: start: 20101209, end: 20110322

REACTIONS (1)
  - Bladder cancer [Recovering/Resolving]
